FAERS Safety Report 8964706 (Version 5)
Quarter: 2013Q2

REPORT INFORMATION
  Report Type: Report from Study
  Country: US (occurrence: US)
  Receive Date: 20121214
  Receipt Date: 20130606
  Transmission Date: 20140414
  Serious: No
  Sender: FDA-Public Use
  Company Number: US-VERTEX PHARMACEUTICALS INC.-2012-026107

PATIENT
  Age: 59 Year
  Sex: Male

DRUGS (3)
  1. VX-950 (TELAPREVIR) [Suspect]
     Indication: HEPATITIS C
     Dosage: UNK
     Route: 048
     Dates: start: 20121117, end: 20130209
  2. RIBAVIRIN [Suspect]
     Indication: HEPATITIS C
     Dosage: UNK
     Route: 048
     Dates: start: 20121117
  3. PEGASYS [Suspect]
     Indication: HEPATITIS C
     Dosage: UNK
     Route: 058
     Dates: start: 20121117

REACTIONS (5)
  - Epistaxis [Not Recovered/Not Resolved]
  - Back pain [Not Recovered/Not Resolved]
  - Nausea [Not Recovered/Not Resolved]
  - Diarrhoea [Not Recovered/Not Resolved]
  - Blood uric acid increased [Not Recovered/Not Resolved]
